FAERS Safety Report 9795919 (Version 1)
Quarter: 2014Q1

REPORT INFORMATION
  Report Type: Report from Study
  Country: IT (occurrence: IT)
  Receive Date: 20140103
  Receipt Date: 20140103
  Transmission Date: 20141002
  Serious: Yes (Other)
  Sender: FDA-Public Use
  Company Number: IT-PFIZER INC-2013368730

PATIENT
  Age: 61 Year
  Sex: Male
  Weight: 76 kg

DRUGS (3)
  1. SUTENT [Suspect]
     Indication: RENAL CANCER
     Dosage: 37.5 MG, DAILY
     Route: 048
     Dates: start: 20131113, end: 20131211
  2. LORTAAN [Concomitant]
     Indication: HYPERTENSION
     Dosage: UNK
     Dates: start: 20131217
  3. FLECAINIDE [Concomitant]
     Indication: ARRHYTHMIA SUPRAVENTRICULAR
     Dosage: UNK
     Dates: start: 20131217

REACTIONS (1)
  - Atrial flutter [Not Recovered/Not Resolved]
